FAERS Safety Report 5063462-5 (Version None)
Quarter: 2006Q3

REPORT INFORMATION
  Report Type: 
  Country: None (occurrence: None)
  Receive Date: 20060727
  Receipt Date: 20041203
  Transmission Date: 20061208
  Serious: Yes (Other)
  Sender: FDA-Public Use
  Company Number: GB-GLAXOSMITHKLINE-B0360624A

PATIENT
  Sex: Female

DRUGS (7)
  1. PAROXETINE HYDROCHLORIDE [Suspect]
     Indication: DEPRESSION
     Dosage: 40MG PER DAY
     Route: 065
     Dates: start: 19980601
  2. HRT [Concomitant]
     Dates: start: 19960101
  3. MULTIPLE MEDICATIONS [Concomitant]
  4. AMITRIPTYLINE HCL [Concomitant]
     Dates: start: 20030213
  5. ALCOHOL [Concomitant]
     Dates: start: 20020213
  6. DIAZEPAM [Concomitant]
  7. PREMPAK C [Concomitant]

REACTIONS (19)
  - CONDITION AGGRAVATED [None]
  - CONFUSIONAL STATE [None]
  - DELUSION [None]
  - DELUSIONAL DISORDER, UNSPECIFIED TYPE [None]
  - DEPRESSED MOOD [None]
  - DIABETES MELLITUS [None]
  - DISSOCIATION [None]
  - DRUG INTOLERANCE [None]
  - DRUG WITHDRAWAL SYNDROME [None]
  - FEELING ABNORMAL [None]
  - FLASHBACK [None]
  - ILL-DEFINED DISORDER [None]
  - INTENTIONAL DRUG MISUSE [None]
  - INTENTIONAL OVERDOSE [None]
  - OVERDOSE [None]
  - POST-TRAUMATIC STRESS DISORDER [None]
  - PSYCHOTIC DISORDER [None]
  - SCIATICA [None]
  - SUICIDAL IDEATION [None]
